FAERS Safety Report 7152419-6 (Version None)
Quarter: 2010Q4

REPORT INFORMATION
  Report Type: 
  Country: None (occurrence: None)
  Receive Date: 20101124
  Receipt Date: 20101112
  Transmission Date: 20110411
  Serious: Yes (Hospitalization)
  Sender: FDA-Public Use
  Company Number: OMPQ-NO-1007S-0648

PATIENT
  Age: 71 Year
  Sex: Female

DRUGS (2)
  1. OMNIPAQUE 140 [Suspect]
     Indication: CHEST X-RAY ABNORMAL
     Dosage: 100 ML, SINGLE DOSE, I.V.
     Route: 042
     Dates: start: 20100705, end: 20100705
  2. PL GRAN (CAFFEINE SALICYLAMIDE, PARACETAMOL; PROMETHAZINE METHYLENE DI [Concomitant]

REACTIONS (3)
  - ERYTHEMA MULTIFORME [None]
  - NASOPHARYNGITIS [None]
  - SKIN TEST POSITIVE [None]
